FAERS Safety Report 16365854 (Version 1)
Quarter: 2019Q2

REPORT INFORMATION
  Report Type: Spontaneous
  Country: US (occurrence: US)
  Receive Date: 20190529
  Receipt Date: 20190529
  Transmission Date: 20190711
  Serious: Yes (Hospitalization)
  Sender: FDA-Public Use
  Company Number: US-ALKERMES INC.-ALK-2019-002824

PATIENT
  Age: 34 Year
  Sex: Female

DRUGS (1)
  1. VIVITROL [Suspect]
     Active Substance: NALTREXONE
     Indication: DRUG DEPENDENCE
     Dosage: 380 MG, QMO
     Route: 030

REACTIONS (7)
  - Osteomyelitis [Recovering/Resolving]
  - Spinal cord abscess [Recovering/Resolving]
  - Arthralgia [Recovering/Resolving]
  - Injection site pain [Recovering/Resolving]
  - Injection site reaction [Recovering/Resolving]
  - Injection site mass [Recovering/Resolving]
  - Product administration error [Recovered/Resolved]

NARRATIVE: CASE EVENT DATE: 20190513
